FAERS Safety Report 13950793 (Version 1)
Quarter: 2017Q3

REPORT INFORMATION
  Report Type: Spontaneous
  Country: US (occurrence: US)
  Receive Date: 20170908
  Receipt Date: 20170908
  Transmission Date: 20171128
  Serious: No
  Sender: FDA-Public Use
  Company Number: US-ROCHE-1131294

PATIENT
  Sex: Female

DRUGS (4)
  1. RITUXAN [Suspect]
     Active Substance: RITUXIMAB
     Indication: NON-HODGKIN^S LYMPHOMA
     Route: 065
     Dates: start: 20010401
  2. NEUPOGEN [Concomitant]
     Active Substance: FILGRASTIM
  3. EPOGEN [Concomitant]
     Active Substance: ERYTHROPOIETIN
  4. PREDNISONE. [Concomitant]
     Active Substance: PREDNISONE
     Route: 065

REACTIONS (4)
  - Pyrexia [Unknown]
  - Feeling abnormal [Unknown]
  - Cough [Unknown]
  - Epistaxis [Unknown]
